FAERS Safety Report 17626619 (Version 5)
Quarter: 2021Q4

REPORT INFORMATION
  Report Type: Report from Study
  Country: US (occurrence: US)
  Receive Date: 20200405
  Receipt Date: 20211117
  Transmission Date: 20220303
  Serious: Yes (Hospitalization)
  Sender: FDA-Public Use
  Company Number: US-SHIRE-US202012488

PATIENT
  Age: 23 Year
  Sex: Female
  Weight: 45 kg

DRUGS (14)
  1. TEDUGLUTIDE [Suspect]
     Active Substance: TEDUGLUTIDE
     Indication: Short-bowel syndrome
     Dosage: 2.3 MILLIGRAM, QD
     Route: 058
  2. TEDUGLUTIDE [Suspect]
     Active Substance: TEDUGLUTIDE
     Indication: Short-bowel syndrome
     Dosage: 2.3 MILLIGRAM, QD
     Route: 058
  3. TEDUGLUTIDE [Suspect]
     Active Substance: TEDUGLUTIDE
     Indication: Short-bowel syndrome
     Dosage: 2.3 MILLIGRAM, QD
     Route: 058
  4. TEDUGLUTIDE [Suspect]
     Active Substance: TEDUGLUTIDE
     Indication: Short-bowel syndrome
     Dosage: 2.3 MILLIGRAM, QD
     Route: 058
  5. TEDUGLUTIDE [Suspect]
     Active Substance: TEDUGLUTIDE
     Dosage: 2.3 MILLIGRAM, QD
     Route: 058
  6. TEDUGLUTIDE [Suspect]
     Active Substance: TEDUGLUTIDE
     Dosage: 2.3 MILLIGRAM, QD
     Route: 058
  7. TEDUGLUTIDE [Suspect]
     Active Substance: TEDUGLUTIDE
     Dosage: 2.3 MILLIGRAM, QD
     Route: 058
  8. TEDUGLUTIDE [Suspect]
     Active Substance: TEDUGLUTIDE
     Dosage: 2.3 MILLIGRAM, QD
     Route: 058
  9. COPPER [Concomitant]
     Active Substance: COPPER
     Dosage: 2 MILLIGRAM
     Route: 050
  10. OMEPRAZOLE [Concomitant]
     Active Substance: OMEPRAZOLE
     Dosage: 10 MILLIGRAM
     Route: 050
  11. DEKAS PLUS [Concomitant]
     Dosage: UNK
     Route: 065
  12. ZINC SULFATE [Concomitant]
     Active Substance: ZINC SULFATE
     Dosage: 200 MILLIGRAM
     Route: 065
  13. VITAMIN D3 [Concomitant]
     Active Substance: CHOLECALCIFEROL
     Dosage: 10 MICROGRAM
     Route: 050
  14. VITAMIN E [Concomitant]
     Active Substance: .ALPHA.-TOCOPHEROL
     Dosage: 100 INTERNATIONAL UNIT
     Route: 050

REACTIONS (6)
  - Hospitalisation [Unknown]
  - Abdominal discomfort [Unknown]
  - Fatigue [Unknown]
  - Nausea [Unknown]
  - Gait inability [Unknown]
  - Increased appetite [Unknown]

NARRATIVE: CASE EVENT DATE: 20210101
